FAERS Safety Report 9619425 (Version 1)
Quarter: 2013Q4

REPORT INFORMATION
  Report Type: Spontaneous
  Country: GB (occurrence: GB)
  Receive Date: 20131014
  Receipt Date: 20131014
  Transmission Date: 20140711
  Serious: Yes (Disabling, Other)
  Sender: FDA-Public Use
  Company Number: GB-MYLANLABS-2013S1021968

PATIENT
  Age: 28 Year
  Sex: Female
  Weight: 98.42 kg

DRUGS (4)
  1. SERTRALINE [Suspect]
     Indication: ANXIETY
     Route: 048
     Dates: start: 201201, end: 201201
  2. SERTRALINE [Suspect]
     Indication: DEPRESSION
     Route: 048
     Dates: start: 201201, end: 201201
  3. SERTRALINE [Suspect]
     Indication: PANIC ATTACK
     Route: 048
     Dates: start: 201201, end: 201201
  4. PROPRANOLOL [Concomitant]
     Indication: PRODUCT USED FOR UNKNOWN INDICATION

REACTIONS (9)
  - Energy increased [Unknown]
  - Activities of daily living impaired [Unknown]
  - Euphoric mood [Unknown]
  - Anxiety [Unknown]
  - Dissociation [Unknown]
  - Mood swings [Recovered/Resolved]
  - Panic attack [Unknown]
  - Self-injurious ideation [Unknown]
  - Crying [Unknown]
